FAERS Safety Report 4709092-3 (Version None)
Quarter: 2005Q3

REPORT INFORMATION
  Report Type: 
  Country: None (occurrence: None)
  Receive Date: 20050707
  Receipt Date: 20050707
  Transmission Date: 20060218
  Serious: Yes (Life-Threatening, Hospitalization, Disabling)
  Sender: FDA-Public Use
  Company Number: None

PATIENT
  Sex: Female
  Weight: 81.6475 kg

DRUGS (1)
  1. WARFARIN 2MG [Suspect]
     Indication: BLOOD DISORDER
     Dosage: 2MG 2MWF, 1STTS ORAL
     Route: 048
     Dates: start: 19940101, end: 20050502

REACTIONS (10)
  - ARTHROPATHY [None]
  - BONE DISORDER [None]
  - CEREBROVASCULAR ACCIDENT [None]
  - CYSTITIS [None]
  - FLUID RETENTION [None]
  - LIGAMENT DISORDER [None]
  - NEPHRITIS [None]
  - RHEUMATOID ARTHRITIS [None]
  - STRESS [None]
  - WEIGHT DECREASED [None]
